FAERS Safety Report 16370391 (Version 1)
Quarter: 2019Q2

REPORT INFORMATION
  Report Type: Spontaneous
  Country: US (occurrence: US)
  Receive Date: 20190530
  Receipt Date: 20190530
  Transmission Date: 20190711
  Serious: Yes (Other)
  Sender: FDA-Public Use
  Company Number: US-SAREPTA THERAPEUTICS, INC-SRP-000083-2019

PATIENT
  Age: 13 Year
  Sex: Male
  Weight: 54.8 kg

DRUGS (2)
  1. EXONDYS 51 [Suspect]
     Active Substance: ETEPLIRSEN
     Indication: DUCHENNE MUSCULAR DYSTROPHY
     Dosage: UNK
     Route: 065
  2. EXONDYS 51 [Suspect]
     Active Substance: ETEPLIRSEN
     Indication: DUCHENNE MUSCULAR DYSTROPHY
     Dosage: 1650 MG, WEEKLY
     Route: 042
     Dates: start: 201804

REACTIONS (1)
  - Infusion site extravasation [Unknown]

NARRATIVE: CASE EVENT DATE: 20190520
